FAERS Safety Report 7390747-X (Version None)
Quarter: 2011Q2

REPORT INFORMATION
  Report Type: 
  Country: None (occurrence: None)
  Receive Date: 20110404
  Receipt Date: 20110323
  Transmission Date: 20111010
  Serious: Yes (Hospitalization)
  Sender: FDA-Public Use
  Company Number: US-BIOGENIDEC-2011BI011372

PATIENT
  Sex: Female

DRUGS (1)
  1. TYSABRI [Suspect]
     Indication: MULTIPLE SCLEROSIS
     Route: 042
     Dates: start: 20071121, end: 20101104

REACTIONS (9)
  - POLLAKIURIA [None]
  - MULTIPLE SCLEROSIS RELAPSE [None]
  - BALANCE DISORDER [None]
  - ASTHENIA [None]
  - TREMOR [None]
  - CYSTITIS [None]
  - MICTURITION URGENCY [None]
  - CANDIDIASIS [None]
  - URINARY RETENTION [None]
